FAERS Safety Report 5478051-8 (Version None)
Quarter: 2007Q4

REPORT INFORMATION
  Report Type: 
  Country: None (occurrence: None)
  Receive Date: 20071005
  Receipt Date: 20070927
  Transmission Date: 20080405
  Serious: Yes (Other)
  Sender: FDA-Public Use
  Company Number: US-JNJFOC-20071000205

PATIENT
  Sex: Male
  Weight: 112.49 kg

DRUGS (6)
  1. REMICADE [Suspect]
     Indication: RHEUMATOID ARTHRITIS
  2. CELEBREX [Concomitant]
  3. MTX [Concomitant]
  4. FOLIC ACID [Concomitant]
  5. LODINE [Concomitant]
  6. PREDNISONE [Concomitant]

REACTIONS (1)
  - HODGKIN'S DISEASE [None]
